FAERS Safety Report 6256816-2 (Version None)
Quarter: 2009Q3

REPORT INFORMATION
  Report Type: 
  Country: None (occurrence: None)
  Receive Date: 20090706
  Receipt Date: 20090625
  Transmission Date: 20100115
  Serious: Yes (Hospitalization)
  Sender: FDA-Public Use
  Company Number: PHHY2009DE25918

PATIENT
  Sex: Female

DRUGS (6)
  1. CGS 20267 T30748+ [Suspect]
     Indication: BREAST CANCER
     Dosage: 2.5 MG DAILY
     Route: 048
  2. ATACAND [Concomitant]
     Dosage: 8 MG, 1-0-1/2
     Dates: start: 20030101
  3. ZOMETA [Concomitant]
     Dosage: 4 MG,2 X YEARLY
     Dates: start: 20080621
  4. HYDROCHLOROTHIAZIDE [Concomitant]
     Dosage: 25 MG,1/2-0-1/4
     Dates: start: 20030101
  5. ASPIRIN [Concomitant]
     Dosage: 100 MG,1-0-0
     Dates: start: 20030101
  6. AMIODARONE HCL [Concomitant]
     Dosage: 100 MG,1/2-0-0
     Dates: start: 20050601

REACTIONS (10)
  - ATAXIA [None]
  - CLAVICLE FRACTURE [None]
  - FALL [None]
  - GAMMOPATHY [None]
  - GASTROENTERITIS NOROVIRUS [None]
  - MUSCULAR WEAKNESS [None]
  - OSTEOSYNTHESIS [None]
  - PAIN [None]
  - POLYNEUROPATHY [None]
  - ULNA FRACTURE [None]
